FAERS Safety Report 9500749 (Version 1)
Quarter: 2013Q1

REPORT INFORMATION
  Report Type: Spontaneous
  Country: US (occurrence: None)
  Receive Date: 20130107
  Receipt Date: 20130107
  Transmission Date: 20140127
  Serious: No
  Sender: FDA-Public Use
  Company Number: PHHY2012US102081

PATIENT
  Age: 49 Year
  Sex: Female
  Weight: 52.2 kg

DRUGS (8)
  1. GILENYA [Suspect]
     Indication: RELAPSING-REMITTING MULTIPLE SCLEROSIS
     Route: 048
     Dates: start: 20110128
  2. METHYLPREDNISOLONE (METHYLPREDNISOLONE) [Concomitant]
  3. PREDNISONE (PREDNISONE) [Concomitant]
  4. VIVELLE-DOT (ESTRADIOL) [Concomitant]
  5. PROMETRIUM (PROGESTERONE) [Concomitant]
  6. CRESTOR (ROSUVASTATIN CALCIUM) [Concomitant]
  7. STEROIDS NOS [Concomitant]
  8. PLAVIX (CLOPIDOGREL BISULFATE) [Concomitant]

REACTIONS (1)
  - Peripheral coldness [None]
